FAERS Safety Report 24980031 (Version 1)
Quarter: 2025Q1

REPORT INFORMATION
  Report Type: Spontaneous
  Country: FR (occurrence: FR)
  Receive Date: 20250218
  Receipt Date: 20250218
  Transmission Date: 20250409
  Serious: Yes (Hospitalization)
  Sender: NOVARTIS
  Company Number: None

PATIENT
  Age: 58 Year
  Sex: Female
  Weight: 74 kg

DRUGS (28)
  1. CYCLOSPORINE [Suspect]
     Active Substance: CYCLOSPORINE
     Indication: Prophylaxis against transplant rejection
     Route: 042
     Dates: start: 20241210, end: 20241220
  2. CYCLOSPORINE [Suspect]
     Active Substance: CYCLOSPORINE
     Route: 042
     Dates: start: 20241220, end: 20250103
  3. CYCLOSPORINE [Suspect]
     Active Substance: CYCLOSPORINE
     Route: 048
     Dates: start: 20250103, end: 20250106
  4. CYCLOSPORINE [Suspect]
     Active Substance: CYCLOSPORINE
     Route: 042
     Dates: start: 20250106, end: 20250110
  5. CYCLOSPORINE [Suspect]
     Active Substance: CYCLOSPORINE
     Dosage: 160 MG, BID, MATIN ET SOIR
     Route: 048
     Dates: start: 20250110
  6. MYCOPHENOLATE MOFETIL [Concomitant]
     Active Substance: MYCOPHENOLATE MOFETIL
     Indication: Prophylaxis against transplant rejection
     Dosage: 1000 MG, TID, MATIN MIDI ET SOIR
     Route: 048
     Dates: start: 20241210, end: 20241228
  7. VALACYCLOVIR HYDROCHLORIDE [Concomitant]
     Active Substance: VALACYCLOVIR HYDROCHLORIDE
     Indication: Product used for unknown indication
     Dosage: 500 MG, BID, MATIN ET SOIR
     Route: 065
     Dates: start: 20241206, end: 20241217
  8. LETERMOVIR [Concomitant]
     Active Substance: LETERMOVIR
     Indication: Product used for unknown indication
     Route: 065
     Dates: start: 20241206, end: 20241231
  9. URSODIOL [Concomitant]
     Active Substance: URSODIOL
     Indication: Product used for unknown indication
     Dosage: 250 MG, TID, 3 FOIS PAR JOUR
     Route: 065
     Dates: start: 20241128, end: 20250110
  10. OXOMEMAZINE [Concomitant]
     Active Substance: OXOMEMAZINE
     Indication: Product used for unknown indication
     Dosage: 5 ML, QD, SOIR
     Route: 065
     Dates: start: 20241129, end: 20250103
  11. MELATONIN [Concomitant]
     Active Substance: MELATONIN
     Indication: Product used for unknown indication
     Dosage: 5 MG, QD, SOIR
     Route: 065
     Dates: start: 20241129, end: 20241217
  12. FLUTICASONE PROPIONATE [Concomitant]
     Active Substance: FLUTICASONE PROPIONATE
     Indication: Product used for unknown indication
     Dosage: 250 UG, BID, MATIN ET SOIR
     Route: 065
     Dates: start: 20241129, end: 20250110
  13. IPRATROPIUM BROMIDE [Concomitant]
     Active Substance: IPRATROPIUM BROMIDE
     Indication: Bronchopneumopathy
     Dosage: 0.5 MG, TID, 3 FOIS PAR JOUR
     Route: 065
     Dates: start: 20241210, end: 20241214
  14. TERBUTALINE [Concomitant]
     Active Substance: TERBUTALINE
     Indication: Bronchopneumopathy
     Dosage: 5 MG, TID, 3 FOIS PAR JOUR
     Route: 065
     Dates: start: 20241210, end: 20241214
  15. PIPERACILLIN SODIUM\TAZOBACTAM SODIUM [Concomitant]
     Active Substance: PIPERACILLIN SODIUM\TAZOBACTAM SODIUM
     Indication: Product used for unknown indication
     Dosage: 16 G, Q24H,  EN CONTINU SUR 24H
     Route: 042
     Dates: start: 20241203, end: 20241206
  16. BACTRIM [Concomitant]
     Active Substance: SULFAMETHOXAZOLE\TRIMETHOPRIM
     Indication: Product used for unknown indication
     Dosage: 2 DOSAGE FORM, Q8H, 2 AMPOULES DE 400MG+80MG TOUTES LES 8H
     Route: 065
     Dates: start: 20241209, end: 20241209
  17. MEROPENEM [Concomitant]
     Active Substance: MEROPENEM
     Indication: Product used for unknown indication
     Dosage: 2 G, Q8H
     Route: 065
     Dates: start: 20241209, end: 20241211
  18. FIDAXOMICIN [Concomitant]
     Active Substance: FIDAXOMICIN
     Indication: Product used for unknown indication
     Dosage: 200 MG, BID, MATIN ET SOIR, P.O
     Route: 065
     Dates: start: 20241210, end: 20241220
  19. ATOVAQUONE [Concomitant]
     Active Substance: ATOVAQUONE
     Indication: Product used for unknown indication
     Dosage: 750 MG, BID, MATIN ET SOIR
     Route: 065
     Dates: start: 20241209, end: 20241217
  20. AMIKACIN [Concomitant]
     Active Substance: AMIKACIN
     Indication: Product used for unknown indication
     Route: 065
     Dates: start: 20241216, end: 20241216
  21. PANTOPRAZOLE [Concomitant]
     Active Substance: PANTOPRAZOLE
     Indication: Product used for unknown indication
     Dosage: 40 MG, QD, SOIR, PO
     Route: 065
     Dates: start: 20241203, end: 20241217
  22. PANTOPRAZOLE [Concomitant]
     Active Substance: PANTOPRAZOLE
     Dosage: 40 MG, QD, SOIR, I.V
     Route: 065
     Dates: start: 20241217, end: 20241228
  23. PRAVASTATIN SODIUM [Concomitant]
     Active Substance: PRAVASTATIN SODIUM
     Indication: Dyslipidaemia
     Dosage: 20 MG, QD, SOIR
     Route: 065
     Dates: start: 20241128
  24. FUROSEMIDE [Concomitant]
     Active Substance: FUROSEMIDE
     Indication: Product used for unknown indication
     Dosage: 60 MG, Q24H,  EN CONTINU SUR 24H
     Route: 065
     Dates: start: 20241208, end: 20241209
  25. NICARDIPINE HYDROCHLORIDE [Concomitant]
     Active Substance: NICARDIPINE HYDROCHLORIDE
     Indication: Hypertension
     Dosage: 50 MG, BID, MATIN ET SOIR
     Route: 065
     Dates: start: 20241215, end: 20241217
  26. MONTMORILLONITE [Concomitant]
     Active Substance: MONTMORILLONITE
     Indication: Product used for unknown indication
     Dosage: 3 G, TID, MATIN, MIDI ET SOIR
     Route: 065
     Dates: start: 20241210, end: 20241220
  27. RACECADOTRIL [Concomitant]
     Active Substance: RACECADOTRIL
     Indication: Product used for unknown indication
     Dosage: 100 MG, TID, MATIN MIDI ET SOIR
     Route: 065
     Dates: start: 20241210, end: 20241215
  28. TRAMADOL HYDROCHLORIDE [Concomitant]
     Active Substance: TRAMADOL HYDROCHLORIDE
     Indication: Product used for unknown indication
     Dosage: 300 MG, Q24H, EN CONTINU PAR 24H
     Route: 065
     Dates: start: 20241216, end: 20241217

REACTIONS (1)
  - Posterior reversible encephalopathy syndrome [Recovered/Resolved]

NARRATIVE: CASE EVENT DATE: 20241219
